FAERS Safety Report 4519918-4 (Version None)
Quarter: 2004Q4

REPORT INFORMATION
  Report Type: 
  Country: None (occurrence: None)
  Receive Date: 20041202
  Receipt Date: 20041202
  Transmission Date: 20050328
  Serious: Yes (Hospitalization)
  Sender: FDA-Public Use
  Company Number: None

PATIENT
  Age: 47 Year
  Sex: Female
  Weight: 61 kg

DRUGS (1)
  1. PHENYTOIN [Suspect]
     Indication: CONVULSION
     Dosage: 800MG  DAILY ORAL
     Route: 048

REACTIONS (11)
  - ATAXIA [None]
  - BALANCE DISORDER [None]
  - DIFFICULTY IN WALKING [None]
  - DIPLOPIA [None]
  - DIZZINESS [None]
  - DRUG INTERACTION [None]
  - DRUG LEVEL BELOW THERAPEUTIC [None]
  - DRUG TOXICITY [None]
  - FEELING ABNORMAL [None]
  - NYSTAGMUS [None]
  - RASH [None]
